FAERS Safety Report 4779847-8 (Version None)
Quarter: 2005Q3

REPORT INFORMATION
  Report Type: 
  Country: None (occurrence: None)
  Receive Date: 20050927
  Receipt Date: 20050919
  Transmission Date: 20060218
  Serious: Yes (Death)
  Sender: FDA-Public Use
  Company Number: US-ABBOTT-05P-163-0311403-00

PATIENT
  Sex: Female

DRUGS (3)
  1. RITONAVIR SOFT GELATIN CAPSULES [Suspect]
     Indication: HIV INFECTION
     Route: 048
  2. APTIVUS [Suspect]
     Indication: HIV INFECTION
     Route: 048
  3. APTIVUS [Concomitant]
     Indication: HIV INFECTION
     Route: 048

REACTIONS (1)
  - HIV INFECTION [None]
